FAERS Safety Report 7917307-3 (Version None)
Quarter: 2011Q4

REPORT INFORMATION
  Report Type: 
  Country: None (occurrence: None)
  Receive Date: 20111116
  Receipt Date: 20111108
  Transmission Date: 20120403
  Serious: Yes (Hospitalization)
  Sender: FDA-Public Use
  Company Number: PHHY2011JP94935

PATIENT
  Age: 60 Year
  Sex: Female

DRUGS (1)
  1. PARLODEL [Suspect]
     Indication: SOMATOTROPIN SUPPRESSION TEST
     Route: 048
     Dates: start: 20100101

REACTIONS (1)
  - ATRIOVENTRICULAR BLOCK [None]
